FAERS Safety Report 13504115 (Version 2)
Quarter: 2018Q1

REPORT INFORMATION
  Report Type: Spontaneous
  Country: US (occurrence: US)
  Receive Date: 20170502
  Receipt Date: 20180315
  Transmission Date: 20180508
  Serious: Yes (Hospitalization, Other)
  Sender: FDA-Public Use
  Company Number: US-ENDO PHARMACEUTICALS INC-2017-000628

PATIENT
  Age: 53 Year
  Sex: Male
  Weight: 111.11 kg

DRUGS (8)
  1. ANDROGEL [Suspect]
     Active Substance: TESTOSTERONE
     Indication: BLOOD TESTOSTERONE DECREASED
     Dosage: UNK UNKNOWN, UNKNOWN
  2. CARVEDILOL. [Concomitant]
     Active Substance: CARVEDILOL
     Indication: MYOCARDIAL INFARCTION
     Dosage: UNK UNKNOWN, UNKNOWN
     Route: 065
     Dates: start: 200907
  3. TESTIM [Suspect]
     Active Substance: TESTOSTERONE
     Indication: BLOOD TESTOSTERONE DECREASED
     Dosage: UNK UNKNOWN, DAILY
     Route: 062
     Dates: start: 200708, end: 200711
  4. ATORVASTATIN [Concomitant]
     Active Substance: ATORVASTATIN
     Indication: BLOOD CHOLESTEROL
     Dosage: UNK UNKNOWN, UNKNOWN
     Route: 065
     Dates: start: 201003
  5. TESTOSTERONE CYPIONATE. [Suspect]
     Active Substance: TESTOSTERONE CYPIONATE
     Indication: BLOOD TESTOSTERONE DECREASED
     Dosage: UNK UNKNOWN, BIWEEKLY
     Route: 065
     Dates: start: 200711, end: 201303
  6. DEPO TESTOSTERONE [Suspect]
     Active Substance: TESTOSTERONE
     Indication: BLOOD TESTOSTERONE DECREASED
     Dosage: UNK UNKNOWN, BIWEEKLY
     Route: 065
     Dates: start: 201303, end: 201406
  7. LOSARTAN POTASSIUM TABLETS [Concomitant]
     Active Substance: LOSARTAN POTASSIUM
     Indication: HYPERTENSION
     Dosage: UNK UNKNOWN, UNKNOWN
     Route: 065
     Dates: start: 201003
  8. SPIRONOLACTONE TABLETS [Concomitant]
     Active Substance: SPIRONOLACTONE
     Indication: ROUTINE HEALTH MAINTENANCE
     Dosage: UNK UNKNOWN, UNKNOWN
     Route: 065
     Dates: start: 201003

REACTIONS (3)
  - Cerebrovascular accident [Not Recovered/Not Resolved]
  - Atrial thrombosis [Not Recovered/Not Resolved]
  - Myocardial infarction [Not Recovered/Not Resolved]

NARRATIVE: CASE EVENT DATE: 20080131
